FAERS Safety Report 16534863 (Version 7)
Quarter: 2020Q2

REPORT INFORMATION
  Report Type: Report from Study
  Country: US (occurrence: US)
  Receive Date: 20190705
  Receipt Date: 20200428
  Transmission Date: 20200713
  Serious: Yes (Hospitalization, Other)
  Sender: FDA-Public Use
  Company Number: US-BIOGEN-2019BI00731058

PATIENT
  Age: 66 Year
  Sex: Female

DRUGS (3)
  1. TYSABRI [Suspect]
     Active Substance: NATALIZUMAB
     Indication: MULTIPLE SCLEROSIS
     Route: 065
     Dates: start: 20190415
  2. TYSABRI [Suspect]
     Active Substance: NATALIZUMAB
     Route: 065
     Dates: start: 20190415, end: 20190610
  3. METHOTREXATE. [Concomitant]
     Active Substance: METHOTREXATE
     Indication: PRODUCT USED FOR UNKNOWN INDICATION
     Route: 065

REACTIONS (24)
  - Sepsis [Recovered/Resolved]
  - Fungal infection [Unknown]
  - Dry skin [Unknown]
  - Pain in extremity [Unknown]
  - Urinary tract infection [Recovered/Resolved with Sequelae]
  - Rheumatoid arthritis [Not Recovered/Not Resolved]
  - Skin depigmentation [Unknown]
  - Muscular weakness [Not Recovered/Not Resolved]
  - Peripheral swelling [Unknown]
  - Gangrene [Recovered/Resolved with Sequelae]
  - Malaise [Unknown]
  - Multiple sclerosis relapse [Unknown]
  - Opportunistic infection [Unknown]
  - Pain [Unknown]
  - Multiple sclerosis [Unknown]
  - Headache [Unknown]
  - Peripheral vascular disorder [Unknown]
  - Dermal cyst [Recovered/Resolved]
  - Arthritis [Not Recovered/Not Resolved]
  - Skin infection [Unknown]
  - Mental impairment [Unknown]
  - Poor quality sleep [Unknown]
  - Psoriasis [Unknown]
  - Nausea [Unknown]

NARRATIVE: CASE EVENT DATE: 20190415
